FAERS Safety Report 12261404 (Version 1)
Quarter: 2016Q2

REPORT INFORMATION
  Report Type: Spontaneous
  Country: JP (occurrence: JP)
  Receive Date: 20160412
  Receipt Date: 20160412
  Transmission Date: 20160815
  Serious: Yes (Other)
  Sender: FDA-Public Use
  Company Number: JP-ALLERGAN-1653521US

PATIENT
  Age: 66 Year
  Sex: Female

DRUGS (12)
  1. UNASYN [Suspect]
     Active Substance: AMPICILLIN SODIUM\SULBACTAM SODIUM
     Indication: VAGINAL INFECTION
  2. CALONAL [Concomitant]
     Active Substance: ACETAMINOPHEN
     Dosage: UNK
  3. BETANIS [Concomitant]
     Active Substance: MIRABEGRON
     Dosage: UNK
     Route: 048
  4. LANSOPRAZOLE. [Concomitant]
     Active Substance: LANSOPRAZOLE
  5. DOPAMINE [Concomitant]
     Active Substance: DOPAMINE\DOPAMINE HYDROCHLORIDE
     Route: 051
  6. MARZULENE S [Concomitant]
     Active Substance: GLUTAMINE\SODIUM GUALENATE
     Route: 048
  7. SHAKUYAKUKANZOTO [Concomitant]
     Active Substance: HERBALS
     Route: 048
  8. METHYCOBAL [Concomitant]
     Active Substance: METHYLCOBALAMIN
  9. UNASYN [Suspect]
     Active Substance: AMPICILLIN SODIUM\SULBACTAM SODIUM
     Indication: CYSTITIS
     Dosage: 2250 MG, QD
     Route: 048
     Dates: start: 20160212, end: 20160220
  10. DOWNAT [Concomitant]
     Route: 048
  11. ALDIOXA [Concomitant]
     Active Substance: ALDIOXA
     Route: 048
  12. URSO [Suspect]
     Active Substance: URSODIOL
     Indication: PRODUCT USED FOR UNKNOWN INDICATION
     Route: 048

REACTIONS (2)
  - Melaena [Recovering/Resolving]
  - Diarrhoea [Not Recovered/Not Resolved]

NARRATIVE: CASE EVENT DATE: 20160216
